FAERS Safety Report 10228831 (Version 1)
Quarter: 2014Q2

REPORT INFORMATION
  Report Type: Spontaneous
  Country: GB (occurrence: GB)
  Receive Date: 20140610
  Receipt Date: 20140610
  Transmission Date: 20141212
  Serious: Yes (Hospitalization)
  Sender: FDA-Public Use
  Company Number: GB-TEVA-485942ISR

PATIENT
  Age: 86 Year
  Sex: Female
  Weight: 50 kg

DRUGS (8)
  1. INDAPAMIDE [Suspect]
     Indication: HYPERTENSION
     Route: 048
     Dates: start: 20131014, end: 20131107
  2. ALENDRONATE [Concomitant]
  3. CACIT VITAMIN D3 [Concomitant]
  4. ICAPS [Concomitant]
  5. OMEPRAZOLE [Concomitant]
  6. PARACETAMOL [Concomitant]
  7. FELODIPINE [Concomitant]
  8. MOVICOL [Concomitant]

REACTIONS (2)
  - Hyponatraemia [Recovered/Resolved]
  - Amnesia [Unknown]
